FAERS Safety Report 15482165 (Version 1)
Quarter: 2018Q4

REPORT INFORMATION
  Report Type: Spontaneous
  Country: US (occurrence: US)
  Receive Date: 20181003
  Receipt Date: 20181003
  Transmission Date: 20190205
  Serious: Yes (Hospitalization)
  Sender: FDA-Public Use
  Company Number: None

PATIENT
  Sex: Male
  Weight: 81.9 kg

DRUGS (8)
  1. DILTIAZEM. [Concomitant]
     Active Substance: DILTIAZEM
  2. PANTOPRAZOLE [Concomitant]
     Active Substance: PANTOPRAZOLE
  3. ZYTIGA [Suspect]
     Active Substance: ABIRATERONE ACETATE
     Indication: PROSTATE CANCER
     Route: 048
     Dates: start: 20180602
  4. ATIVAN [Concomitant]
     Active Substance: LORAZEPAM
  5. ELIQUIS [Concomitant]
     Active Substance: APIXABAN
  6. FLOMAX [Concomitant]
     Active Substance: TAMSULOSIN HYDROCHLORIDE
  7. FUROSEMIDE. [Concomitant]
     Active Substance: FUROSEMIDE
  8. VITAMIN D [Concomitant]
     Active Substance: CHOLECALCIFEROL

REACTIONS (1)
  - Hospitalisation [None]
